FAERS Safety Report 9146305 (Version 1)
Quarter: 2013Q1

REPORT INFORMATION
  Report Type: Spontaneous
  Country: IT (occurrence: IT)
  Receive Date: 20130307
  Receipt Date: 20130328
  Transmission Date: 20140127
  Serious: Yes (Hospitalization)
  Sender: FDA-Public Use
  Company Number: IT-ASTRAZENECA-2013SE14099

PATIENT
  Age: 30228 Day
  Sex: Female

DRUGS (7)
  1. ATENOLOL [Suspect]
     Indication: HYPERTENSION
     Route: 048
     Dates: start: 20000101
  2. ENAPREN [Concomitant]
  3. LASIX [Concomitant]
  4. ALDACTONE [Concomitant]
  5. KCL RETARD [Concomitant]
  6. DEURSIL [Concomitant]
  7. ASA [Concomitant]

REACTIONS (3)
  - Ischaemic cardiomyopathy [Recovered/Resolved]
  - Sinoatrial block [Recovered/Resolved]
  - Atrioventricular block [Recovered/Resolved]
